FAERS Safety Report 4443693-5 (Version None)
Quarter: 2004Q3

REPORT INFORMATION
  Report Type: 
  Country: None (occurrence: None)
  Receive Date: 20040729
  Receipt Date: 20040209
  Transmission Date: 20050211
  Serious: Yes (Other)
  Sender: FDA-Public Use
  Company Number: US-JNJFOC-20040202311

PATIENT
  Age: 13 Year
  Sex: Male

DRUGS (4)
  1. RISPERDAL [Suspect]
     Indication: TIC
     Dosage: SEE IMAGE
     Route: 048
     Dates: start: 20031101, end: 20040131
  2. RISPERDAL [Suspect]
     Indication: TIC
     Dosage: SEE IMAGE
     Route: 048
     Dates: start: 20040201, end: 20040201
  3. RISPERDAL [Suspect]
     Indication: TIC
     Dosage: SEE IMAGE
     Route: 048
     Dates: start: 20040201, end: 20040201
  4. RISPERDAL [Suspect]
     Indication: TIC
     Dosage: SEE IMAGE
     Route: 048
     Dates: start: 20040201

REACTIONS (3)
  - ABNORMAL BEHAVIOUR [None]
  - CONVULSION [None]
  - DYSARTHRIA [None]
